FAERS Safety Report 4834896-6 (Version None)
Quarter: 2005Q4

REPORT INFORMATION
  Report Type: 
  Country: None (occurrence: None)
  Receive Date: 20051115
  Receipt Date: 20051103
  Transmission Date: 20060501
  Serious: Yes (Disabling)
  Sender: FDA-Public Use
  Company Number: 2004S1000044

PATIENT
  Age: 49 Year
  Sex: Male
  Weight: 90.7194 kg

DRUGS (3)
  1. DELATESTRYL [Suspect]
     Indication: BLOOD TESTOSTERONE DECREASED
     Dosage: SEE IMAGE
     Route: 030
     Dates: start: 20010101, end: 20020101
  2. DELATESTRYL [Suspect]
     Indication: BLOOD TESTOSTERONE DECREASED
     Dosage: SEE IMAGE
     Route: 030
     Dates: start: 20030101, end: 20040101
  3. PREDNISONE [Concomitant]

REACTIONS (3)
  - FEELING ABNORMAL [None]
  - HYPERTENSION [None]
  - POLYCYTHAEMIA VERA [None]
